FAERS Safety Report 7573403-4 (Version None)
Quarter: 2011Q2

REPORT INFORMATION
  Report Type: 
  Country: None (occurrence: None)
  Receive Date: 20110627
  Receipt Date: 20110329
  Transmission Date: 20111010
  Serious: No
  Sender: FDA-Public Use
  Company Number: A0920448A

PATIENT
  Age: 54 Year
  Sex: Female

DRUGS (2)
  1. LAMICTAL [Suspect]
     Dosage: 100MG PER DAY
     Route: 048
     Dates: start: 20110130
  2. ENBREL [Concomitant]

REACTIONS (4)
  - CONSTIPATION [None]
  - CHILLS [None]
  - ABDOMINAL PAIN UPPER [None]
  - NAUSEA [None]
